FAERS Safety Report 8169249-9 (Version None)
Quarter: 2012Q1

REPORT INFORMATION
  Report Type: 
  Country: None (occurrence: None)
  Receive Date: 20120228
  Receipt Date: 20120217
  Transmission Date: 20120608
  Serious: No
  Sender: FDA-Public Use
  Company Number: JP-ASTRAZENECA-2012SE07824

PATIENT
  Age: 28 Year
  Sex: Male

DRUGS (1)
  1. XYLOCAINE W/ EPINEPHRINE [Suspect]
     Route: 065

REACTIONS (1)
  - HAEMORRHAGE [None]
